FAERS Safety Report 4898595-7 (Version None)
Quarter: 2006Q1

REPORT INFORMATION
  Report Type: 
  Country: None (occurrence: None)
  Receive Date: 20060130
  Receipt Date: 20060119
  Transmission Date: 20060701
  Serious: Yes (Hospitalization)
  Sender: FDA-Public Use
  Company Number: US016669

PATIENT
  Sex: Female

DRUGS (1)
  1. MODASOMIL [Suspect]
     Indication: NARCOLEPSY

REACTIONS (3)
  - AGITATION [None]
  - AMNESIA [None]
  - CONFUSIONAL STATE [None]
